FAERS Safety Report 6780102-5 (Version None)
Quarter: 2010Q2

REPORT INFORMATION
  Report Type: 
  Country: None (occurrence: None)
  Receive Date: 20100618
  Receipt Date: 20100607
  Transmission Date: 20101027
  Serious: No
  Sender: FDA-Public Use
  Company Number: US-PFIZER INC-2007024895

PATIENT
  Sex: Male
  Weight: 77 kg

DRUGS (3)
  1. ZOLOFT [Suspect]
     Dosage: 25MG/DAY
     Dates: start: 20070310
  2. ACETYLSALICYLIC ACID [Concomitant]
     Indication: ARTERIOSCLEROSIS
  3. XANAX [Concomitant]
     Indication: ANXIETY

REACTIONS (7)
  - BRADYPHRENIA [None]
  - EJACULATION DISORDER [None]
  - ERECTILE DYSFUNCTION [None]
  - FEELING ABNORMAL [None]
  - LIBIDO DECREASED [None]
  - SOMNOLENCE [None]
  - THERAPEUTIC RESPONSE UNEXPECTED WITH DRUG SUBSTITUTION [None]
